FAERS Safety Report 14109268 (Version 7)
Quarter: 2018Q2

REPORT INFORMATION
  Report Type: Spontaneous
  Country: DE (occurrence: DE)
  Receive Date: 20171019
  Receipt Date: 20180408
  Transmission Date: 20180711
  Serious: Yes (Hospitalization)
  Sender: FDA-Public Use
  Company Number: DE-BIOGEN-2017BV000367

PATIENT
  Sex: Male

DRUGS (1)
  1. ALPROLIX [Suspect]
     Active Substance: EFTRENONACOG ALFA
     Indication: FACTOR IX DEFICIENCY
     Route: 042
     Dates: start: 201706

REACTIONS (3)
  - Pain in extremity [Recovered/Resolved]
  - Oedema peripheral [Not Recovered/Not Resolved]
  - Decubitus ulcer [Not Recovered/Not Resolved]
